FAERS Safety Report 17242486 (Version 2)
Quarter: 2020Q1

REPORT INFORMATION
  Report Type: Spontaneous
  Country: US (occurrence: US)
  Receive Date: 20200107
  Receipt Date: 20200113
  Transmission Date: 20200409
  Serious: No
  Sender: FDA-Public Use
  Company Number: US-SA-2019SA360802

PATIENT
  Age: 69 Year

DRUGS (1)
  1. GOLD BOND EXTRA STRENGTH LOTION [Suspect]
     Active Substance: DIMETHICONE\MENTHOL

REACTIONS (4)
  - Condition aggravated [Unknown]
  - Product dose omission [Unknown]
  - Skin exfoliation [Unknown]
  - Discomfort [Unknown]

NARRATIVE: CASE EVENT DATE: 20191220
